FAERS Safety Report 13649100 (Version 1)
Quarter: 2017Q2

REPORT INFORMATION
  Report Type: Spontaneous
  Country: GB (occurrence: GB)
  Receive Date: 20170613
  Receipt Date: 20170613
  Transmission Date: 20170830
  Serious: Yes (Other)
  Sender: FDA-Public Use
  Company Number: PHFR2017GB004274

PATIENT
  Age: 4 Year
  Sex: Female
  Weight: 20.41 kg

DRUGS (1)
  1. PENICILLIN V POTASSIUM. [Suspect]
     Active Substance: PENICILLIN V POTASSIUM
     Indication: SCARLET FEVER
     Dosage: 125MG/5ML 4 TIMES A DAY
     Route: 048
     Dates: start: 20170518

REACTIONS (2)
  - Psychomotor hyperactivity [Not Recovered/Not Resolved]
  - Reaction to drug excipients [Unknown]

NARRATIVE: CASE EVENT DATE: 20170518
